FAERS Safety Report 12255478 (Version 4)
Quarter: 2016Q2

REPORT INFORMATION
  Report Type: Report from Study
  Country: US (occurrence: US)
  Receive Date: 20160412
  Receipt Date: 20160518
  Transmission Date: 20160815
  Serious: Yes (Death, Other)
  Sender: FDA-Public Use
  Company Number: US-GILEAD-2016-0206414

PATIENT
  Age: 80 Year
  Sex: Female

DRUGS (12)
  1. AMBRISENTAN [Suspect]
     Active Substance: AMBRISENTAN
     Indication: PULMONARY HYPERTENSION
     Dosage: 5 MG, QD
     Route: 065
     Dates: start: 20130222, end: 20160510
  2. CELLCEPT [Concomitant]
     Active Substance: MYCOPHENOLATE MOFETIL\MYCOPHENOLATE MOFETIL HYDROCHLORIDE
  3. RECLAST [Concomitant]
     Active Substance: ZOLEDRONIC ACID
  4. MEPRON                             /00049601/ [Concomitant]
  5. PRILOSEC [Concomitant]
     Active Substance: OMEPRAZOLE MAGNESIUM
  6. ASPIRIN                            /00002701/ [Concomitant]
     Active Substance: ASPIRIN
  7. ATIVAN [Concomitant]
     Active Substance: LORAZEPAM
  8. COMPAZINE [Concomitant]
     Active Substance: PROCHLORPERAZINE MALEATE
  9. CELEXA [Concomitant]
     Active Substance: CITALOPRAM HYDROBROMIDE
  10. LACTULOSE. [Concomitant]
     Active Substance: LACTULOSE
  11. MORPHINE [Concomitant]
     Active Substance: MORPHINE
  12. FLONASE                            /00908302/ [Concomitant]
     Active Substance: MOMETASONE FUROATE

REACTIONS (5)
  - Dyspnoea [Unknown]
  - Death [Fatal]
  - Lung disorder [Not Recovered/Not Resolved]
  - Anxiety [Unknown]
  - Terminal state [Unknown]

NARRATIVE: CASE EVENT DATE: 20160510
